FAERS Safety Report 8265439 (Version 6)
Quarter: 2013Q1

REPORT INFORMATION
  Report Type: Spontaneous
  Country: US (occurrence: US)
  Receive Date: 20111128
  Receipt Date: 20130131
  Transmission Date: 20140127
  Serious: Yes (Hospitalization, Other)
  Sender: FDA-Public Use
  Company Number: US-ASTRAZENECA-2010SE16572

PATIENT
  Age: 84 Year
  Sex: Female
  Weight: 73.9 kg

DRUGS (13)
  1. SEROQUEL [Suspect]
     Indication: SLEEP DISORDER
     Route: 048
     Dates: start: 2005
  2. SEROQUEL [Suspect]
     Indication: SLEEP DISORDER
     Route: 048
  3. SEROQUEL [Suspect]
     Indication: SLEEP DISORDER
     Dosage: GENERIC
     Route: 048
     Dates: start: 201204
  4. SEROQUEL [Suspect]
     Indication: SLEEP DISORDER
     Route: 048
  5. SEROQUEL [Suspect]
     Indication: SLEEP DISORDER
     Route: 048
  6. FEMARA [Concomitant]
     Indication: NEOPLASM MALIGNANT
  7. SYNTHROID [Concomitant]
     Indication: THYROID DISORDER
  8. LASIX [Concomitant]
     Indication: OEDEMA PERIPHERAL
  9. VIT D [Concomitant]
     Dosage: 2000 UNITS DAILY
  10. FOLIC ACID [Concomitant]
  11. ZANTAC [Concomitant]
  12. ROBAXIN [Concomitant]
     Indication: MUSCLE RELAXANT THERAPY
  13. CARDIO DRUGS [Concomitant]

REACTIONS (22)
  - Cataract [Unknown]
  - Hernia [Unknown]
  - Pelvic fracture [Unknown]
  - Neoplasm malignant [Unknown]
  - Abdominal adhesions [Unknown]
  - Intestinal obstruction [Unknown]
  - Pain [Unknown]
  - Fall [Recovered/Resolved]
  - Back pain [Unknown]
  - Insomnia [Unknown]
  - Glossodynia [Not Recovered/Not Resolved]
  - Saliva altered [Not Recovered/Not Resolved]
  - Gingival pain [Not Recovered/Not Resolved]
  - Abdominal discomfort [Not Recovered/Not Resolved]
  - Nausea [Not Recovered/Not Resolved]
  - Malaise [Not Recovered/Not Resolved]
  - Visual impairment [Unknown]
  - Eye disorder [Unknown]
  - Influenza [Unknown]
  - Muscle spasms [Unknown]
  - Drug dose omission [Unknown]
  - Intentional drug misuse [Unknown]
